FAERS Safety Report 6595942-5 (Version None)
Quarter: 2010Q1

REPORT INFORMATION
  Report Type: 
  Country: None (occurrence: None)
  Receive Date: 20100223
  Receipt Date: 20100209
  Transmission Date: 20100710
  Serious: Yes (Hospitalization)
  Sender: FDA-Public Use
  Company Number: PHHY2009DE56475

PATIENT
  Sex: Male

DRUGS (13)
  1. STALEVO 100 [Suspect]
     Indication: PARKINSON'S DISEASE
     Dosage: 100/25/200 MG X 4
     Dates: start: 20090830
  2. STALEVO 100 [Suspect]
     Dosage: 50/12.5/200 MG FOUR TIMES DAILY
     Dates: start: 20090831
  3. SIFROL [Suspect]
     Indication: PARKINSON'S DISEASE
     Dosage: 0.7 MG DAILY
     Dates: start: 20090401, end: 20090816
  4. SIFROL [Suspect]
     Dosage: 0.35 MG THRICE DAILY
     Dates: start: 20090817, end: 20090830
  5. NEXIUM [Concomitant]
     Indication: ABDOMINAL PAIN UPPER
     Dosage: 20 MG, QD
  6. FLUDROCORTISONE [Concomitant]
     Indication: CARDIOVASCULAR DISORDER
     Dosage: 0.1 MG, QD
     Dates: start: 20090701
  7. EFFORTIL [Concomitant]
     Indication: CARDIOVASCULAR DISORDER
     Dosage: 10 DROPS AS REQUIRED
     Dates: start: 20090701
  8. MIRTAZAPINE [Concomitant]
     Indication: DEPRESSION
     Dosage: 15 MG, QD
     Dates: start: 20080801
  9. AMANTADINE HCL [Concomitant]
     Indication: PARKINSON'S DISEASE
     Dosage: 100 MG, BID
  10. MADOPAR [Concomitant]
     Indication: PARKINSON'S DISEASE
     Dosage: 100/25 MG
  11. NACOM - SLOW RELEASE [Concomitant]
     Indication: PARKINSON'S DISEASE
     Dosage: 200/50 MG
     Dates: start: 20090117
  12. CLARIUM [Concomitant]
     Indication: PARKINSON'S DISEASE
     Dosage: 500 MG, QD
     Dates: start: 20090828, end: 20090828
  13. CLARIUM [Concomitant]
     Dosage: 50 MG, BID
     Dates: start: 20090829

REACTIONS (4)
  - AUTONOMIC NERVOUS SYSTEM IMBALANCE [None]
  - CARDIOVASCULAR DISORDER [None]
  - FALL [None]
  - LOSS OF CONSCIOUSNESS [None]
